FAERS Safety Report 11154899 (Version 2)
Quarter: 2015Q2

REPORT INFORMATION
  Report Type: Report from Study
  Country: BR (occurrence: BR)
  Receive Date: 20150602
  Receipt Date: 20150603
  Transmission Date: 20150821
  Serious: Yes (Hospitalization, Other)
  Sender: FDA-Public Use
  Company Number: BR-ABBVIE-15K-020-1400437-00

PATIENT
  Sex: Male
  Weight: 91 kg

DRUGS (6)
  1. PREDNISONE. [Concomitant]
     Active Substance: PREDNISONE
     Indication: PAIN
     Route: 048
     Dates: start: 2013
  2. DICLOFENAC SODIUM. [Concomitant]
     Active Substance: DICLOFENAC SODIUM
     Indication: PAIN
     Route: 048
     Dates: start: 2013
  3. METHOTREXATE [Concomitant]
     Active Substance: METHOTREXATE
     Indication: ANKYLOSING SPONDYLITIS
     Route: 048
     Dates: start: 2013
  4. SULFASALAZINE. [Concomitant]
     Active Substance: SULFASALAZINE
     Indication: PRODUCT USED FOR UNKNOWN INDICATION
     Route: 048
     Dates: start: 2013
  5. HUMIRA [Suspect]
     Active Substance: ADALIMUMAB
     Indication: ANKYLOSING SPONDYLITIS
     Route: 058
     Dates: start: 201409, end: 201504
  6. FOLIC ACID. [Concomitant]
     Active Substance: FOLIC ACID
     Indication: PRODUCT USED FOR UNKNOWN INDICATION
     Route: 048
     Dates: start: 2013

REACTIONS (2)
  - Osteoarthritis [Recovering/Resolving]
  - Pain in extremity [Recovering/Resolving]
